FAERS Safety Report 16939649 (Version 1)
Quarter: 2019Q4

REPORT INFORMATION
  Report Type: Report from Study
  Country: US (occurrence: US)
  Receive Date: 20191021
  Receipt Date: 20191021
  Transmission Date: 20200122
  Serious: Yes (Death, Other)
  Sender: FDA-Public Use
  Company Number: US-GILEAD-2019-0429951

PATIENT
  Age: 81 Year
  Sex: Female

DRUGS (1)
  1. AMBRISENTAN [Suspect]
     Active Substance: AMBRISENTAN
     Indication: PULMONARY HYPERTENSION
     Dosage: 10 MG, QD
     Route: 065
     Dates: start: 20190829

REACTIONS (3)
  - Death [Fatal]
  - Ill-defined disorder [Not Recovered/Not Resolved]
  - Photopsia [Not Recovered/Not Resolved]

NARRATIVE: CASE EVENT DATE: 20191006
